FAERS Safety Report 8593823 (Version 2)
Quarter: 2013Q3

REPORT INFORMATION
  Report Type: Spontaneous
  Country: US (occurrence: US)
  Receive Date: 20120604
  Receipt Date: 20130719
  Transmission Date: 20140515
  Serious: Yes (Hospitalization, Disabling)
  Sender: FDA-Public Use
  Company Number: US-ASTRAZENECA-2012SE34782

PATIENT
  Age: 69 Year
  Sex: Female
  Weight: 70.3 kg

DRUGS (8)
  1. NEXIUM [Suspect]
     Dosage: ONE TIME
     Route: 048
     Dates: start: 1971, end: 2009
  2. NEXIUM [Suspect]
     Route: 048
     Dates: start: 20090714
  3. NEXIUM [Suspect]
     Route: 048
     Dates: start: 2013
  4. BUPROPION XL [Concomitant]
     Dates: start: 20120116
  5. AZITHROMYCIN [Concomitant]
     Dosage: 06 PACK
     Dates: start: 20120319
  6. ACYCLOVIR [Concomitant]
     Dates: start: 20130114
  7. ATORVASTATIN [Concomitant]
     Dates: start: 20130220
  8. TRAMADOL [Concomitant]
     Dates: start: 20130415

REACTIONS (12)
  - Muscular weakness [Unknown]
  - Back disorder [Unknown]
  - Lower limb fracture [Unknown]
  - Osteoporosis [Unknown]
  - Bone density decreased [Unknown]
  - Multiple fractures [Unknown]
  - Ankle fracture [Unknown]
  - Fall [Unknown]
  - Arthritis [Unknown]
  - Cataract [Unknown]
  - Musculoskeletal discomfort [Unknown]
  - Depression [Unknown]
